FAERS Safety Report 8500855-5 (Version None)
Quarter: 2012Q3

REPORT INFORMATION
  Report Type: 
  Country: None (occurrence: None)
  Receive Date: 20120710
  Receipt Date: 20120703
  Transmission Date: 20120928
  Serious: Yes (Other)
  Sender: FDA-Public Use
  Company Number: IT-JNJFOC-20120703420

PATIENT

DRUGS (1)
  1. TOPIRAMATE [Suspect]
     Indication: TEMPORAL LOBE EPILEPSY
     Route: 048

REACTIONS (1)
  - ADVERSE REACTION [None]
